FAERS Safety Report 10426345 (Version 1)
Quarter: 2014Q3

REPORT INFORMATION
  Report Type: Spontaneous
  Country: BR (occurrence: BR)
  Receive Date: 20140903
  Receipt Date: 20140903
  Transmission Date: 20150326
  Serious: Yes (Hospitalization)
  Sender: FDA-Public Use
  Company Number: BR-ASTRAZENECA-2014SE64758

PATIENT
  Sex: Male
  Weight: 69 kg

DRUGS (3)
  1. LOSARTAN [Suspect]
     Active Substance: LOSARTAN
     Indication: BLOOD PRESSURE ABNORMAL
     Route: 065
  2. LOSARTAN [Suspect]
     Active Substance: LOSARTAN
     Indication: BLOOD PRESSURE ABNORMAL
     Route: 065
  3. SELOZOK [Suspect]
     Active Substance: METOPROLOL SUCCINATE
     Indication: BLOOD PRESSURE ABNORMAL
     Dosage: BID
     Route: 048

REACTIONS (7)
  - Malaise [Recovered/Resolved]
  - Drug ineffective [Unknown]
  - Infarction [Unknown]
  - Syncope [Recovered/Resolved]
  - Hypotension [Unknown]
  - Blood pressure increased [Unknown]
  - Off label use [Unknown]
